FAERS Safety Report 5196704-6 (Version None)
Quarter: 2007Q1

REPORT INFORMATION
  Report Type: 
  Country: None (occurrence: None)
  Receive Date: 20070103
  Receipt Date: 20061226
  Transmission Date: 20070707
  Serious: Yes (Hospitalization)
  Sender: FDA-Public Use
  Company Number: US-BRISTOL-MYERS SQUIBB COMPANY-13625033

PATIENT
  Age: 7 Year
  Sex: Female

DRUGS (3)
  1. METHOTREXATE [Suspect]
     Indication: JUVENILE ARTHRITIS
     Route: 048
  2. NAPROXEN SODIUM [Concomitant]
     Indication: JUVENILE ARTHRITIS
  3. PREDNISONE TAB [Concomitant]
     Indication: JUVENILE ARTHRITIS

REACTIONS (1)
  - HISTOPLASMOSIS [None]
